FAERS Safety Report 22221453 (Version 1)
Quarter: 2023Q2

REPORT INFORMATION
  Report Type: Spontaneous
  Country: US (occurrence: US)
  Receive Date: 20230418
  Receipt Date: 20230418
  Transmission Date: 20230722
  Serious: No
  Sender: FDA-Public Use
  Company Number: US-TEVA-2023-US-2874793

PATIENT
  Age: 40 Year
  Sex: Male

DRUGS (1)
  1. CLONAZEPAM [Suspect]
     Active Substance: CLONAZEPAM
     Indication: Anxiety
     Route: 065
     Dates: start: 2014

REACTIONS (5)
  - Anxiety [Unknown]
  - Staphylococcal infection [Recovered/Resolved]
  - Acne [Recovered/Resolved]
  - Furuncle [Recovered/Resolved]
  - Product supply issue [Unknown]
